FAERS Safety Report 18936345 (Version 1)
Quarter: 2021Q1

REPORT INFORMATION
  Report Type: Report from Study
  Country: JP (occurrence: JP)
  Receive Date: 20210224
  Receipt Date: 20210224
  Transmission Date: 20210420
  Serious: Yes (Hospitalization)
  Sender: FDA-Public Use
  Company Number: JP-PFIZER INC-2021179046

PATIENT
  Age: 14 Year
  Sex: Female
  Weight: 47.8 kg

DRUGS (5)
  1. XYZAL [Concomitant]
     Active Substance: LEVOCETIRIZINE DIHYDROCHLORIDE
     Indication: RHINITIS ALLERGIC
     Dosage: 5 MG, DAILY
     Route: 048
     Dates: start: 20200110
  2. SIROLIMUS. [Suspect]
     Active Substance: SIROLIMUS
     Indication: GORHAM^S DISEASE
     Dosage: 2 MG, 1X/DAY
     Route: 048
     Dates: start: 20190712, end: 20210206
  3. ALFAROL [Concomitant]
     Active Substance: ALFACALCIDOL
     Indication: OSTEOPOROSIS
     Dosage: 1 UG, DAILY
     Route: 048
     Dates: start: 20181002
  4. GLAKAY [Concomitant]
     Active Substance: MENATETRENONE
     Indication: OSTEOPOROSIS
     Dosage: 15 MG, DAILY
     Route: 048
     Dates: start: 20190327
  5. ZOLEDRONIC ACID HYDRATE [Concomitant]
     Active Substance: ZOLEDRONIC ACID
     Indication: OSTEOPOROSIS
     Dosage: 4 MG (3M)
     Route: 042
     Dates: start: 20190718

REACTIONS (1)
  - Lymphangitis [Not Recovered/Not Resolved]

NARRATIVE: CASE EVENT DATE: 20210206
